FAERS Safety Report 8532536-6 (Version None)
Quarter: 2012Q3

REPORT INFORMATION
  Report Type: 
  Country: None (occurrence: None)
  Receive Date: 20120724
  Receipt Date: 20120718
  Transmission Date: 20120928
  Serious: No
  Sender: FDA-Public Use
  Company Number: US-PFIZER INC-2012088235

PATIENT
  Sex: Female

DRUGS (3)
  1. ACCUPRIL [Suspect]
     Dosage: UNK
  2. GLUCOTROL [Suspect]
     Dosage: UNK
  3. CALAN SR [Suspect]
     Dosage: UNK

REACTIONS (5)
  - FEELING ABNORMAL [None]
  - DRUG DISPENSING ERROR [None]
  - PAIN [None]
  - HEADACHE [None]
  - PAIN IN EXTREMITY [None]
